FAERS Safety Report 8966142 (Version 1)
Quarter: 2012Q4

REPORT INFORMATION
  Report Type: 
  Country: US (occurrence: US)
  Receive Date: 20121217
  Receipt Date: 20121217
  Transmission Date: 20130627
  Serious: No
  Sender: FDA-Public Use
  Company Number: US-PFIZER INC-2012314950

PATIENT
  Age: 37 Year
  Sex: Female
  Weight: 83 kg

DRUGS (1)
  1. ADVIL COLD AND SINUS [Suspect]
     Indication: SINUS INFECTION
     Dosage: UNK, as needed
     Route: 048
     Dates: start: 201212

REACTIONS (4)
  - Menstrual disorder [Unknown]
  - Hypomenorrhoea [Unknown]
  - Menstruation irregular [Unknown]
  - Polymenorrhoea [Unknown]
